FAERS Safety Report 20448973 (Version 1)
Quarter: 2022Q1

REPORT INFORMATION
  Report Type: Spontaneous
  Country: FR (occurrence: FR)
  Receive Date: 20220209
  Receipt Date: 20220209
  Transmission Date: 20220423
  Serious: Yes (Hospitalization, Other)
  Sender: FDA-Public Use
  Company Number: FR-SA-2022SA032945

PATIENT
  Age: 33 Year
  Sex: Male

DRUGS (4)
  1. DUPILUMAB [Suspect]
     Active Substance: DUPILUMAB
     Indication: Dermatitis atopic
     Dosage: UNK (LOADING DOSE)
  2. BUDESONIDE [Concomitant]
     Active Substance: BUDESONIDE
     Indication: Crohn^s disease
     Dosage: UNK
  3. AMINOSALICYLIC ACID [Concomitant]
     Active Substance: AMINOSALICYLIC ACID
     Indication: Crohn^s disease
     Dosage: UNK
  4. METHOTREXATE [Concomitant]
     Active Substance: METHOTREXATE
     Indication: Dermatitis atopic
     Dosage: UNK

REACTIONS (6)
  - Pyoderma gangrenosum [Recovered/Resolved]
  - Oedema peripheral [Recovered/Resolved]
  - Ulcer [Recovered/Resolved]
  - Skin ulcer [Recovered/Resolved]
  - Nodule [Recovered/Resolved]
  - Skin lesion [Recovered/Resolved]
